FAERS Safety Report 23837732 (Version 3)
Quarter: 2024Q2

REPORT INFORMATION
  Report Type: Spontaneous
  Country: US (occurrence: US)
  Receive Date: 20240509
  Receipt Date: 20240627
  Transmission Date: 20240715
  Serious: No
  Sender: FDA-Public Use
  Company Number: US-SA-SAC20240501001116

PATIENT
  Age: 56 Year
  Sex: Female
  Weight: 66.6 kg

DRUGS (8)
  1. DUPIXENT [Suspect]
     Active Substance: DUPILUMAB
     Indication: Nasal polyps
     Dosage: 300 MG, QOW
     Route: 058
  2. FORTEO [Concomitant]
     Active Substance: TERIPARATIDE
  3. CALCIUM\CHOLECALCIFEROL [Concomitant]
     Active Substance: CALCIUM\CHOLECALCIFEROL
  4. PULMICORT TURBUHALER [Concomitant]
     Active Substance: BUDESONIDE
  5. INOSITOL [Concomitant]
     Active Substance: INOSITOL
  6. MONTELUKAST SODIUM [Concomitant]
     Active Substance: MONTELUKAST SODIUM
  7. SELENIUM [Concomitant]
     Active Substance: SELENIUM
  8. MAGNESIUM [Concomitant]
     Active Substance: MAGNESIUM

REACTIONS (4)
  - Injection site mass [Unknown]
  - Headache [Recovering/Resolving]
  - Injection site swelling [Unknown]
  - Injection site pain [Recovering/Resolving]

NARRATIVE: CASE EVENT DATE: 20240509
